FAERS Safety Report 9014381 (Version 2)
Quarter: 2013Q1

REPORT INFORMATION
  Report Type: Spontaneous
  Country: US (occurrence: US)
  Receive Date: 20130115
  Receipt Date: 20130131
  Transmission Date: 20140127
  Serious: No
  Sender: FDA-Public Use
  Company Number: US-PFIZER INC-2013011674

PATIENT
  Age: 49 Year
  Sex: Male
  Weight: 81.63 kg

DRUGS (2)
  1. ZYVOX [Suspect]
     Indication: DIABETIC ULCER
     Dosage: 600 MG, 2X/DAY
     Route: 048
     Dates: start: 20130108
  2. OXYCODONE [Concomitant]
     Dosage: UNK

REACTIONS (3)
  - Retching [Not Recovered/Not Resolved]
  - Lethargy [Not Recovered/Not Resolved]
  - Fatigue [Not Recovered/Not Resolved]
